FAERS Safety Report 4868857-8 (Version None)
Quarter: 2005Q4

REPORT INFORMATION
  Report Type: 
  Country: None (occurrence: None)
  Receive Date: 20051223
  Receipt Date: 20051216
  Transmission Date: 20060501
  Serious: Yes (Hospitalization, Other)
  Sender: FDA-Public Use
  Company Number: 2005039265

PATIENT
  Age: 76 Year
  Sex: Female
  Weight: 50 kg

DRUGS (14)
  1. LIPITOR [Suspect]
     Indication: HYPERLIPIDAEMIA
     Dosage: 10 MG (10 MG, 1 IN 1 D),  ORAL
     Route: 048
     Dates: start: 20050101, end: 20050101
  2. DIURETICS (DIURETICS) [Concomitant]
  3. ASPIRIN [Concomitant]
  4. CARDIAC THERAPY (CARDIAC THERAPY) [Concomitant]
  5. TOLTERODINE TARTRATE [Concomitant]
  6. NICOTINIC ACID [Concomitant]
  7. ADALAT [Concomitant]
  8. DIOVAN [Concomitant]
  9. VOLTAREN [Concomitant]
  10. VIARTRIL (GLUCOSAMINE HYDROIODIDE,GLUCOSAMINE SULFATE) [Concomitant]
  11. VITAMIN B 1-6-12 (CYANOCOBALAMIN, PYRIDOXINE HYDROCHLORIDE, THIAMINE H [Concomitant]
  12. CENTRUM (MINERALS NOS, VITAMINS NOS) [Concomitant]
  13. CALTRATE (CALCIUM CARBONATE) [Concomitant]
  14. BISOLVON (BROMHEXINE HYDROCHLORIDE) [Concomitant]

REACTIONS (13)
  - ABASIA [None]
  - ACTIVITIES OF DAILY LIVING IMPAIRED [None]
  - ARTHRALGIA [None]
  - HYPERSENSITIVITY [None]
  - JOINT SWELLING [None]
  - MUSCULAR WEAKNESS [None]
  - MYALGIA [None]
  - NODULE [None]
  - OEDEMA PERIPHERAL [None]
  - PITTING OEDEMA [None]
  - PYREXIA [None]
  - RASH ERYTHEMATOUS [None]
  - TENDERNESS [None]
